FAERS Safety Report 23237355 (Version 2)
Quarter: 2024Q2

REPORT INFORMATION
  Report Type: Report from Study
  Country: ES (occurrence: ES)
  Receive Date: 20231128
  Receipt Date: 20240403
  Transmission Date: 20240716
  Serious: Yes (Hospitalization, Other)
  Sender: FDA-Public Use
  Company Number: ES-PFIZER INC-PV202300193429

PATIENT

DRUGS (2)
  1. NIRMATRELVIR\RITONAVIR [Interacting]
     Active Substance: NIRMATRELVIR\RITONAVIR
     Indication: COVID-19 treatment
     Dosage: UNK, 2X/DAY
  2. TAMSULOSIN [Interacting]
     Active Substance: TAMSULOSIN
     Dosage: UNK

REACTIONS (2)
  - Acute kidney injury [Unknown]
  - Drug interaction [Unknown]
